FAERS Safety Report 10158021 (Version 1)
Quarter: 2014Q2

REPORT INFORMATION
  Report Type: Spontaneous
  Country: US (occurrence: US)
  Receive Date: 20140507
  Receipt Date: 20140507
  Transmission Date: 20141212
  Serious: Yes (Other)
  Sender: FDA-Public Use
  Company Number: US-TEVA-480321USA

PATIENT
  Sex: Female
  Weight: 52.21 kg

DRUGS (6)
  1. CARBIDOPA AND LEVODOPA [Suspect]
     Indication: PARKINSON^S DISEASE
  2. REQUIP [Concomitant]
  3. LEVOTHYROXINE [Concomitant]
     Indication: HYPOTHYROIDISM
  4. PREDNISONE [Concomitant]
     Indication: DRUG HYPERSENSITIVITY
     Dosage: EVERY OTHER DAY
     Route: 048
  5. AZILECT [Concomitant]
     Indication: PARKINSON^S DISEASE
     Dates: start: 201401, end: 201404
  6. AZILECT [Concomitant]
     Dates: start: 201404

REACTIONS (2)
  - Autoimmune haemolytic anaemia [Unknown]
  - Drug hypersensitivity [Unknown]
